FAERS Safety Report 8593481-3 (Version None)
Quarter: 2012Q3

REPORT INFORMATION
  Report Type: 
  Country: None (occurrence: None)
  Receive Date: 20120814
  Receipt Date: 20120807
  Transmission Date: 20120928
  Serious: Yes (Other)
  Sender: FDA-Public Use
  Company Number: CA-ABBOTT-12P-028-0961578-00

PATIENT
  Sex: Male

DRUGS (1)
  1. HUMIRA [Suspect]
     Indication: PSORIASIS
     Route: 058
     Dates: start: 20111116

REACTIONS (5)
  - SOFT TISSUE MASS [None]
  - LYMPHOMA [None]
  - METASTASIS [None]
  - PLEURAL EFFUSION [None]
  - RETROPERITONEAL MASS [None]
